FAERS Safety Report 24642558 (Version 3)
Quarter: 2024Q4

REPORT INFORMATION
  Report Type: Spontaneous
  Country: GR (occurrence: GR)
  Receive Date: 20241120
  Receipt Date: 20241209
  Transmission Date: 20250115
  Serious: Yes (Hospitalization, Other)
  Sender: NOVARTIS
  Company Number: GR-002147023-NVSC2024GR221696

PATIENT
  Age: 58 Year
  Sex: Female

DRUGS (6)
  1. COSENTYX [Suspect]
     Active Substance: SECUKINUMAB
     Indication: Psoriatic arthropathy
     Dosage: 300 MG, QMO (AT 5TH DAY EVERY MONTH)
     Route: 058
  2. COSENTYX [Suspect]
     Active Substance: SECUKINUMAB
     Dosage: UNK, QMO (150MGX2 FOR 2 YEARS)
     Route: 065
  3. AMLODIPINE BESYLATE\VALSARTAN [Suspect]
     Active Substance: AMLODIPINE BESYLATE\VALSARTAN
     Indication: Hypertension
     Route: 065
  4. VENLAFAXINE HYDROCHLORIDE [Concomitant]
     Active Substance: VENLAFAXINE HYDROCHLORIDE
     Indication: Product used for unknown indication
     Dosage: UNK
     Route: 065
  5. TOPIRAMATE [Concomitant]
     Active Substance: TOPIRAMATE
     Indication: Product used for unknown indication
     Dosage: UNK
     Route: 065
  6. DIAZEPAM [Concomitant]
     Active Substance: DIAZEPAM
     Indication: Product used for unknown indication
     Dosage: UNK
     Route: 065

REACTIONS (12)
  - Cerebrovascular accident [Recovered/Resolved]
  - Cerebrovascular accident [Recovered/Resolved]
  - Amnesia [Unknown]
  - Hypoaesthesia [Unknown]
  - Hypoaesthesia [Unknown]
  - Carotid artery occlusion [Unknown]
  - Transient ischaemic attack [Unknown]
  - Hypertension [Unknown]
  - Disorientation [Unknown]
  - Dizziness [Unknown]
  - Headache [Unknown]
  - Confusional state [Recovered/Resolved]

NARRATIVE: CASE EVENT DATE: 20230930
